APPROVED DRUG PRODUCT: LANIAZID
Active Ingredient: ISONIAZID
Strength: 50MG/5ML
Dosage Form/Route: SYRUP;ORAL
Application: A089243 | Product #001
Applicant: LANNETT CO INC
Approved: Feb 3, 1986 | RLD: No | RS: No | Type: DISCN